FAERS Safety Report 4638870-4 (Version None)
Quarter: 2005Q2

REPORT INFORMATION
  Report Type: 
  Country: None (occurrence: None)
  Receive Date: 20050418
  Receipt Date: 20050418
  Transmission Date: 20051028
  Serious: Yes (Other)
  Sender: FDA-Public Use
  Company Number: None

PATIENT
  Age: 59 Year
  Sex: Female
  Weight: 86.1834 kg

DRUGS (2)
  1. ABILIFY [Suspect]
     Indication: BIPOLAR I DISORDER
     Dosage: 15   QHS  PARENTERAL
     Route: 051
     Dates: start: 20050324, end: 20050410
  2. ABILIFY [Suspect]
     Indication: PSYCHOTIC DISORDER
     Dosage: 15   QHS  PARENTERAL
     Route: 051
     Dates: start: 20050324, end: 20050410

REACTIONS (1)
  - TARDIVE DYSKINESIA [None]
